FAERS Safety Report 9315377 (Version 4)
Quarter: 2013Q4

REPORT INFORMATION
  Report Type: Report from Study
  Country: SE (occurrence: SE)
  Receive Date: 20130529
  Receipt Date: 20131108
  Transmission Date: 20140711
  Serious: Yes (Hospitalization)
  Sender: FDA-Public Use
  Company Number: SE-TEVA-393774USA

PATIENT
  Age: 64 Year
  Sex: Female
  Weight: 62 kg

DRUGS (5)
  1. BENDAMUSTINE [Suspect]
     Indication: NON-HODGKIN^S LYMPHOMA UNSPECIFIED HISTOLOGY INDOLENT
     Dosage: REGIMEN #1
     Route: 042
     Dates: start: 20121114, end: 20130220
  2. ATENOLOL [Concomitant]
     Indication: EXTRASYSTOLES
  3. BARACLUDE [Concomitant]
     Indication: HEPATITIS B
     Dates: start: 20130221
  4. BARACLUDE [Concomitant]
     Indication: HEPATIC ENZYME INCREASED
  5. VALACICLOVIR [Concomitant]
     Indication: HERPES ZOSTER

REACTIONS (1)
  - Hepatitis B [Recovered/Resolved]
